FAERS Safety Report 19014289 (Version 1)
Quarter: 2021Q1

REPORT INFORMATION
  Report Type: Spontaneous
  Country: CN (occurrence: CN)
  Receive Date: 20210316
  Receipt Date: 20210316
  Transmission Date: 20210420
  Serious: Yes (Disabling, Other)
  Sender: FDA-Public Use
  Company Number: CN-BAXTER-2021BAX004735

PATIENT
  Age: 77 Year
  Sex: Female
  Weight: 66 kg

DRUGS (7)
  1. DAPAGLIFLOZIN. [Suspect]
     Active Substance: DAPAGLIFLOZIN
     Indication: DIABETES MELLITUS
     Dosage: DOSAGE FORM: TABLET
     Route: 048
     Dates: start: 20210220, end: 20210224
  2. DOCETAXEL. [Suspect]
     Active Substance: DOCETAXEL
     Indication: BREAST CANCER
     Dosage: DOCETAXEL 100 MG + 0.9% SODIUM CHLORIDE 250 ML
     Route: 041
     Dates: start: 20210218, end: 20210218
  3. ENDOXAN [Suspect]
     Active Substance: CYCLOPHOSPHAMIDE
     Indication: BREAST CANCER
     Dosage: CYCLOPHOSPHAMIDE 0.7 G + 0.9% SODIUM CHLORIDE 100 ML
     Route: 041
     Dates: start: 20210218, end: 20210218
  4. SAXAGLIPTIN [Suspect]
     Active Substance: SAXAGLIPTIN
     Indication: DIABETES MELLITUS
     Dosage: DOSAGE FORM: TABLET
     Route: 048
     Dates: start: 20210220, end: 20210223
  5. GLICLAZIDE [Suspect]
     Active Substance: GLICLAZIDE
     Indication: DIABETES MELLITUS
     Dosage: DOSAGE FORM: TABLET
     Route: 048
     Dates: start: 20210202, end: 20210224
  6. SODIUM CHLORIDE. [Suspect]
     Active Substance: SODIUM CHLORIDE
     Dosage: 0.9% SODIUM CHLORIDE 250 ML + DOCETAXEL 100 MG
     Route: 041
     Dates: start: 20210218, end: 20210218
  7. SODIUM CHLORIDE. [Suspect]
     Active Substance: SODIUM CHLORIDE
     Indication: MEDICATION DILUTION
     Dosage: 0.9% SODIUM CHLORIDE 100 ML + CYCLOPHOSPHAMIDE 0.7 G
     Route: 041
     Dates: start: 20210218, end: 20210218

REACTIONS (5)
  - Decreased appetite [Recovering/Resolving]
  - Diarrhoea [Recovering/Resolving]
  - Blood potassium decreased [Recovering/Resolving]
  - Blood glucose decreased [Recovering/Resolving]
  - Coma [Recovered/Resolved]

NARRATIVE: CASE EVENT DATE: 20210221
